FAERS Safety Report 5467987-X (Version None)
Quarter: 2007Q3

REPORT INFORMATION
  Report Type: 
  Country: None (occurrence: None)
  Receive Date: 20070925
  Receipt Date: 20070925
  Transmission Date: 20080115
  Serious: No
  Sender: FDA-Public Use
  Company Number: None

PATIENT
  Age: 22 Year
  Sex: Female
  Weight: 61.7 kg

DRUGS (1)
  1. FLORINEF [Suspect]
     Indication: ORTHOSTATIC HYPOTENSION
     Dosage: 0.1 MG ONCE DAILY BY MOUTH
     Route: 048
     Dates: start: 20070707

REACTIONS (1)
  - BREAST PAIN [None]
